FAERS Safety Report 23979053 (Version 1)
Quarter: 2024Q2

REPORT INFORMATION
  Report Type: Report from Study
  Country: ZA (occurrence: ZA)
  Receive Date: 20240615
  Receipt Date: 20240615
  Transmission Date: 20240715
  Serious: Yes (Other)
  Sender: FDA-Public Use
  Company Number: ZA-ABBVIE-5797428

PATIENT
  Sex: Male

DRUGS (3)
  1. OZURDEX [Suspect]
     Active Substance: DEXAMETHASONE
     Indication: Noninfective chorioretinitis
     Dosage: TIME INTERVAL: AS NECESSARY: OZURDEX ALREADY IMPLANTED?FREQUENCY: EVERY 6 MONTHS
     Route: 050
  2. OZURDEX [Suspect]
     Active Substance: DEXAMETHASONE
     Indication: Iridocyclitis
  3. METHYLPREDNISOLONE [Suspect]
     Active Substance: METHYLPREDNISOLONE
     Indication: Product used for unknown indication
     Route: 065

REACTIONS (4)
  - Rhegmatogenous retinal detachment [Unknown]
  - Cystoid macular oedema [Unknown]
  - Drug ineffective [Unknown]
  - Retinal detachment [Unknown]
